FAERS Safety Report 18565449 (Version 2)
Quarter: 2020Q4

REPORT INFORMATION
  Report Type: Spontaneous
  Country: US (occurrence: US)
  Receive Date: 20201201
  Receipt Date: 20201208
  Transmission Date: 20210114
  Serious: Yes (Hospitalization, Other)
  Sender: FDA-Public Use
  Company Number: US-UCBSA-2020047811

PATIENT
  Age: 60 Year
  Sex: Female

DRUGS (8)
  1. LEVETIRACETAM. [Suspect]
     Active Substance: LEVETIRACETAM
     Indication: OFF LABEL USE
  2. DEXAMETHASONE. [Suspect]
     Active Substance: DEXAMETHASONE
     Indication: BRAIN OEDEMA
     Dosage: EVERY 6 HOURS
     Route: 042
  3. DULOXETINE. [Concomitant]
     Active Substance: DULOXETINE
     Indication: DEPRESSION
     Dosage: 60 MILLIGRAM PER DAY
  4. QUETIAPINE. [Concomitant]
     Active Substance: QUETIAPINE
     Indication: AFFECTIVE DISORDER
     Dosage: EVERY NIGHT AT BEDTIME
  5. DEXAMETHASONE. [Suspect]
     Active Substance: DEXAMETHASONE
     Dosage: EVERY 6 HOURS, 10 MILLIGRAM
     Route: 042
  6. CODEINE [Suspect]
     Active Substance: CODEINE
     Indication: PAIN
     Dosage: EVERY 6 HOURS AS NEEDED
  7. LEVETIRACETAM. [Suspect]
     Active Substance: LEVETIRACETAM
     Indication: SEIZURE PROPHYLAXIS
     Dosage: 500 MILLIGRAM, 2X/DAY (BID)
  8. DULOXETINE. [Concomitant]
     Active Substance: DULOXETINE
     Dosage: 30 MILLIGRAM PER DAY

REACTIONS (14)
  - Personality change [Recovering/Resolving]
  - Irritability [Recovering/Resolving]
  - Mental status changes [Recovering/Resolving]
  - Anger [Recovering/Resolving]
  - Neuropsychiatric symptoms [Recovering/Resolving]
  - Speech disorder [Unknown]
  - Depression [Recovering/Resolving]
  - Toxicity to various agents [Recovering/Resolving]
  - Delusion [Recovering/Resolving]
  - Off label use [Unknown]
  - Patient uncooperative [Recovering/Resolving]
  - Agitation [Recovering/Resolving]
  - Impulsive behaviour [Recovering/Resolving]
  - Mood altered [Recovering/Resolving]
